FAERS Safety Report 9274677 (Version 1)
Quarter: 2013Q2

REPORT INFORMATION
  Report Type: Spontaneous
  Country: US (occurrence: None)
  Receive Date: 20130430
  Receipt Date: 20130430
  Transmission Date: 20140414
  Serious: Yes (Other)
  Sender: FDA-Public Use
  Company Number: None

PATIENT
  Age: 52 Year
  Sex: Male

DRUGS (1)
  1. ENBREL 50 MG [Suspect]
     Indication: RHEUMATOID ARTHRITIS
     Dosage: JAN 20132-PRESENT

REACTIONS (2)
  - Malaise [None]
  - Drug ineffective [None]
